FAERS Safety Report 10073753 (Version 1)
Quarter: 2014Q2

REPORT INFORMATION
  Report Type: Report from Study
  Country: US (occurrence: US)
  Receive Date: 20140411
  Receipt Date: 20140411
  Transmission Date: 20141212
  Serious: Yes (Death, Hospitalization)
  Sender: FDA-Public Use
  Company Number: US-BAXTER-2014BAX017835

PATIENT
  Sex: 0

DRUGS (6)
  1. CYCLOPHOSPHAMIDE FOR INJECTION, USP [Suspect]
     Indication: NEOPLASM MALIGNANT
     Dosage: ON DAY 1 (500-700 MG/M2 WAS PERMITTED)
     Route: 042
  2. ONDANSETRON [Suspect]
     Indication: NEOPLASM MALIGNANT
     Dosage: ON DAY 1
     Route: 042
  3. ONDANSETRON [Suspect]
     Dosage: DAYS 2 AND 3
     Route: 048
  4. DEXAMETHASONE [Suspect]
     Indication: NEOPLASM MALIGNANT
     Dosage: ON DAY 1
     Route: 042
  5. DEXAMETHASONE [Suspect]
     Dosage: ON DAYS 2 AND 3
     Route: 048
  6. CASOPITANT [Suspect]
     Indication: NEOPLASM MALIGNANT
     Dosage: ON DAYS 1-3
     Route: 048

REACTIONS (3)
  - Cerebrovascular accident [Unknown]
  - Corynebacterium sepsis [Unknown]
  - Death [Fatal]
